FAERS Safety Report 6492000-5 (Version None)
Quarter: 2009Q4

REPORT INFORMATION
  Report Type: 
  Country: None (occurrence: None)
  Receive Date: 20091208
  Receipt Date: 20091118
  Transmission Date: 20100525
  Serious: Yes (Disabling, Other)
  Sender: FDA-Public Use
  Company Number: 002478

PATIENT
  Age: 67 Year
  Sex: Female
  Weight: 50 kg

DRUGS (6)
  1. LACOSAMIDE [Suspect]
     Indication: COMPLEX PARTIAL SEIZURES
     Dosage: (1 DF BID ORAL)
     Route: 048
     Dates: start: 20090923, end: 20091021
  2. ALENDRONIC ACID [Concomitant]
  3. BETAMETHASONE VALERATE [Concomitant]
  4. DIAZEPAM [Concomitant]
  5. DIORALYTE [Concomitant]
  6. TEGRETOL [Concomitant]

REACTIONS (4)
  - BLOOD SODIUM DECREASED [None]
  - DEPRESSION [None]
  - DIARRHOEA [None]
  - NAUSEA [None]
